FAERS Safety Report 9095283 (Version 2)
Quarter: 2013Q1

REPORT INFORMATION
  Report Type: Spontaneous
  Country: JP (occurrence: None)
  Receive Date: 20130123
  Receipt Date: 20130129
  Transmission Date: 20140127
  Serious: Yes (Hospitalization)
  Sender: FDA-Public Use
  Company Number: TCI2013A00241

PATIENT
  Age: 60 Year
  Sex: Female

DRUGS (6)
  1. TAKEPRON (LANSOPRAZOLE) [Suspect]
     Route: 048
  2. THEOPHYLLINE [Concomitant]
  3. TULOBUTEROL HYDROCHLORIDE [Concomitant]
  4. CICLESONIDE [Concomitant]
  5. TEPRENONE [Concomitant]
  6. ATORVASTATIN CALCIUM [Concomitant]

REACTIONS (4)
  - Hypoproteinaemia [None]
  - Colitis microscopic [None]
  - Anaemia [None]
  - Diarrhoea [None]
